FAERS Safety Report 11431769 (Version 1)
Quarter: 2015Q3

REPORT INFORMATION
  Report Type: Spontaneous
  Country: US (occurrence: US)
  Receive Date: 20150828
  Receipt Date: 20150828
  Transmission Date: 20151125
  Serious: Yes (Other)
  Sender: FDA-Public Use
  Company Number: US-BAYER-2015-406798

PATIENT

DRUGS (1)
  1. CIPRO [Suspect]
     Active Substance: CIPROFLOXACIN HYDROCHLORIDE
     Indication: URINARY TRACT INFECTION
     Dosage: UNK

REACTIONS (9)
  - Suicidal ideation [None]
  - Neuropathy peripheral [None]
  - Dyspnoea [None]
  - Insomnia [None]
  - Anhedonia [None]
  - Depression [None]
  - Choking sensation [None]
  - Vision blurred [None]
  - Anxiety [None]
